FAERS Safety Report 7227049-8 (Version None)
Quarter: 2011Q1

REPORT INFORMATION
  Report Type: 
  Country: None (occurrence: None)
  Receive Date: 20110114
  Receipt Date: 20101111
  Transmission Date: 20110831
  Serious: Yes (Hospitalization)
  Sender: FDA-Public Use
  Company Number: PHHY2010DE72469

PATIENT
  Sex: Male

DRUGS (5)
  1. FENISTIL [Concomitant]
     Dosage: UNK
  2. TELFAST [Concomitant]
     Dosage: 120 MG, PRN
  3. GLEEVEC [Suspect]
     Indication: SYSTEMIC MASTOCYTOSIS
     Dosage: 400 MG, QD
     Route: 048
     Dates: start: 20020101
  4. PARACETAMOL [Concomitant]
     Dosage: UNK
  5. FINASTERIDE [Concomitant]
     Dosage: 1 MG, QD
     Dates: start: 20101018

REACTIONS (4)
  - HEARING IMPAIRED [None]
  - VISUAL ACUITY REDUCED [None]
  - GAIT DISTURBANCE [None]
  - FATIGUE [None]
